FAERS Safety Report 11225520 (Version 1)
Quarter: 2015Q2

REPORT INFORMATION
  Report Type: Spontaneous
  Country: US (occurrence: US)
  Receive Date: 20150629
  Receipt Date: 20150629
  Transmission Date: 20150821
  Serious: Yes (Other)
  Sender: FDA-Public Use
  Company Number: US-JNJFOC-20150618328

PATIENT

DRUGS (1)
  1. XARELTO [Suspect]
     Active Substance: RIVAROXABAN
     Indication: HIGH FREQUENCY ABLATION
     Route: 048

REACTIONS (3)
  - Wrong technique in drug usage process [Unknown]
  - Cerebrovascular accident [Unknown]
  - Product use issue [Unknown]
